FAERS Safety Report 21773956 (Version 1)
Quarter: 2022Q4

REPORT INFORMATION
  Report Type: Spontaneous
  Country: ES (occurrence: ES)
  Receive Date: 20221223
  Receipt Date: 20221223
  Transmission Date: 20230112
  Serious: Yes (Life-Threatening)
  Sender: FDA-Public Use
  Company Number: ES-MLMSERVICE-20221212-3975462-1

PATIENT
  Age: 39 Year
  Sex: Female

DRUGS (2)
  1. LORAZEPAM [Suspect]
     Active Substance: LORAZEPAM
     Indication: Product used for unknown indication
     Dosage: 1MG (40 TABLETS)
     Route: 048
  2. VARENICLINE [Concomitant]
     Active Substance: VARENICLINE
     Indication: Smoking cessation therapy

REACTIONS (3)
  - Toxicity to various agents [Unknown]
  - Suicide attempt [Unknown]
  - Intentional overdose [Unknown]
